FAERS Safety Report 22589833 (Version 1)
Quarter: 2023Q2

REPORT INFORMATION
  Report Type: Spontaneous
  Country: CZ (occurrence: CZ)
  Receive Date: 20230612
  Receipt Date: 20230612
  Transmission Date: 20230721
  Serious: Yes (Other)
  Sender: FDA-Public Use
  Company Number: CZ-002147023-NVSC2023CZ118215

PATIENT
  Age: 48 Year
  Sex: Female

DRUGS (5)
  1. LETROZOLE [Suspect]
     Active Substance: LETROZOLE
     Indication: Breast cancer metastatic
     Dosage: UNK
     Route: 065
     Dates: start: 201908
  2. RIBOCICLIB [Suspect]
     Active Substance: RIBOCICLIB
     Indication: Breast cancer metastatic
     Dosage: UNK
     Route: 065
     Dates: start: 201908
  3. RIBOCICLIB [Suspect]
     Active Substance: RIBOCICLIB
     Dosage: 400 MG
     Route: 065
     Dates: start: 202005
  4. RIBOCICLIB [Suspect]
     Active Substance: RIBOCICLIB
     Dosage: 400 MG
     Route: 065
     Dates: end: 20200106
  5. TRIASYN [Concomitant]
     Indication: Hypertension
     Dosage: UNK
     Route: 065

REACTIONS (12)
  - Malignant neoplasm progression [Recovering/Resolving]
  - Cytomegalovirus infection [Unknown]
  - Neutropenia [Recovering/Resolving]
  - Autoimmune hepatitis [Unknown]
  - Breast cancer metastatic [Recovering/Resolving]
  - Electrocardiogram QT prolonged [Unknown]
  - Alanine aminotransferase increased [Recovered/Resolved]
  - Aspartate aminotransferase increased [Recovered/Resolved]
  - C-reactive protein increased [Unknown]
  - Infection [Unknown]
  - Fatigue [Recovering/Resolving]
  - Pyrexia [Unknown]

NARRATIVE: CASE EVENT DATE: 20191101
